FAERS Safety Report 13702259 (Version 1)
Quarter: 2017Q2

REPORT INFORMATION
  Report Type: Report from Study
  Country: None (occurrence: US)
  Receive Date: 20170629
  Receipt Date: 20170629
  Transmission Date: 20170830
  Serious: No
  Sender: FDA-Public Use
  Company Number: US-IPSEN BIOPHARMACEUTICALS, INC.-2014-6367

PATIENT
  Sex: Male
  Weight: 28 kg

DRUGS (3)
  1. ALLERGY SHOT [Concomitant]
     Active Substance: UNSPECIFIED INGREDIENT
     Indication: PRODUCT USED FOR UNKNOWN INDICATION
     Dosage: NOT REPORTED
     Route: 065
  2. INCRELEX [Suspect]
     Active Substance: MECASERMIN
     Dosage: NOT REPORTED
     Route: 065
     Dates: start: 20090429
  3. INCRELEX [Suspect]
     Active Substance: MECASERMIN
     Indication: PRIMARY INSULIN LIKE GROWTH FACTOR-1 DEFICIENCY
     Route: 058
     Dates: start: 20141111

REACTIONS (3)
  - Eyeglasses therapy [Unknown]
  - Headache [None]
  - Drug dose omission [Unknown]

NARRATIVE: CASE EVENT DATE: 2014
